FAERS Safety Report 4878413-3 (Version None)
Quarter: 2005Q4

REPORT INFORMATION
  Report Type: 
  Country: None (occurrence: None)
  Receive Date: 20051213
  Receipt Date: 20050412
  Transmission Date: 20060501
  Serious: Yes (Hospitalization)
  Sender: FDA-Public Use
  Company Number: 2005028005

PATIENT
  Age: 23 Year
  Sex: Male
  Weight: 65.7716 kg

DRUGS (2)
  1. XANAX [Suspect]
     Indication: WOLFF-PARKINSON-WHITE SYNDROME
     Dosage: 1 MG (0.52 MG, 2 IN 1 D), ORAL
     Route: 048
     Dates: start: 19980101
  2. FLECAINIDE ACETATE [Concomitant]

REACTIONS (16)
  - CONFUSIONAL STATE [None]
  - DISORIENTATION [None]
  - DIZZINESS [None]
  - DRUG ABUSER [None]
  - DRUG ADMINISTRATION ERROR [None]
  - DRUG DEPENDENCE [None]
  - DRUG WITHDRAWAL SYNDROME [None]
  - HEART RATE INCREASED [None]
  - HYPERHIDROSIS [None]
  - INCORRECT DOSE ADMINISTERED [None]
  - INFLUENZA LIKE ILLNESS [None]
  - NAUSEA [None]
  - NERVOUSNESS [None]
  - PYREXIA [None]
  - TREMOR [None]
  - VERTIGO [None]
